FAERS Safety Report 19677661 (Version 1)
Quarter: 2021Q3

REPORT INFORMATION
  Report Type: Report from Study
  Country: CA (occurrence: CA)
  Receive Date: 20210810
  Receipt Date: 20210810
  Transmission Date: 20211014
  Serious: Yes (Other)
  Sender: FDA-Public Use
  Company Number: CA-JNJFOC-20210552839

PATIENT
  Age: 54 Year
  Sex: Male

DRUGS (2)
  1. REMICADE [Suspect]
     Active Substance: INFLIXIMAB
     Indication: CROHN^S DISEASE
     Route: 042
     Dates: start: 20120717
  2. MODERNA COVID?19 VACCINE [Suspect]
     Active Substance: CX-024414
     Indication: COVID-19 PROPHYLAXIS
     Dosage: COVID 19 MODERNA
     Route: 065
     Dates: start: 20210514, end: 20210514

REACTIONS (4)
  - Haematochezia [Recovered/Resolved]
  - Vaccination complication [Recovered/Resolved]
  - Herpes zoster [Unknown]
  - Headache [Recovered/Resolved]

NARRATIVE: CASE EVENT DATE: 20210516
